FAERS Safety Report 22308651 (Version 2)
Quarter: 2023Q2

REPORT INFORMATION
  Report Type: Report from Study
  Country: US (occurrence: US)
  Receive Date: 20230511
  Receipt Date: 20230518
  Transmission Date: 20230722
  Serious: Yes (Other)
  Sender: FDA-Public Use
  Company Number: US-PFIZER INC-PV202300081144

PATIENT
  Age: 26 Year
  Sex: Male
  Weight: 62.7 kg

DRUGS (20)
  1. FOSMANOGEPIX [Suspect]
     Active Substance: FOSMANOGEPIX
     Indication: Aspergillus infection
     Dosage: TABLET, 800 MG, DAILY
     Route: 048
     Dates: start: 20220512, end: 20220806
  2. FOSMANOGEPIX [Suspect]
     Active Substance: FOSMANOGEPIX
     Dosage: TABLET, 800 MG, DAILY
     Route: 048
     Dates: start: 20220830
  3. FOSMANOGEPIX [Suspect]
     Active Substance: FOSMANOGEPIX
     Indication: Aspergillus infection
     Dosage: 600 MG, DAILY INFUSION
     Route: 042
     Dates: start: 20220807, end: 20220829
  4. SIROLIMUS [Suspect]
     Active Substance: SIROLIMUS
     Dosage: UNK
  5. HYDROMORPHONE HYDROCHLORIDE [Suspect]
     Active Substance: HYDROMORPHONE HYDROCHLORIDE
     Dosage: UNK
  6. CYTOXAN [Suspect]
     Active Substance: CYCLOPHOSPHAMIDE
     Indication: Transplant
     Dosage: 3190 MG, Q24 HOURS
     Route: 042
     Dates: start: 20220801, end: 20220802
  7. CAMPATH [Suspect]
     Active Substance: ALEMTUZUMAB
     Indication: Transplant
     Dosage: 1.9 MG
     Route: 042
     Dates: start: 20220720
  8. CAMPATH [Suspect]
     Active Substance: ALEMTUZUMAB
     Dosage: 6.4 MG
     Route: 042
  9. CAMPATH [Suspect]
     Active Substance: ALEMTUZUMAB
     Dosage: 19 MG
     Route: 042
     Dates: end: 20220722
  10. BUSULFEX [Suspect]
     Active Substance: BUSULFAN
     Indication: Transplant
     Dosage: 159 MG, Q24 HOURS
     Route: 042
     Dates: start: 20220725, end: 20220726
  11. OXYCONTIN [Suspect]
     Active Substance: OXYCODONE HYDROCHLORIDE
  12. NOXAFIL [Suspect]
     Active Substance: POSACONAZOLE
     Indication: Aspergillus infection
     Dosage: 300 MG, TWICE DAILY
     Route: 048
     Dates: start: 20220413, end: 20220612
  13. NOXAFIL [Suspect]
     Active Substance: POSACONAZOLE
     Dosage: 400 MG, TWICE DAILY
     Route: 048
     Dates: start: 20220901, end: 20221013
  14. NOXAFIL [Suspect]
     Active Substance: POSACONAZOLE
     Dosage: 300 MG, TWICE DAILY
     Route: 048
     Dates: start: 20221014
  15. POSACONAZOLE [Suspect]
     Active Substance: POSACONAZOLE
     Indication: Aspergillus infection
     Dosage: INFUSION, 300 MG, Q8 HOURS
     Route: 042
     Dates: start: 20220613, end: 20220831
  16. ACYCLOVIR [Concomitant]
     Active Substance: ACYCLOVIR
     Indication: Antiviral prophylaxis
     Dosage: 800 MG, Q12 HOURS
     Route: 048
     Dates: start: 20220719
  17. EVUSHELD [Concomitant]
     Active Substance: CILGAVIMAB\TIXAGEVIMAB
     Indication: COVID-19 prophylaxis
     Dosage: 300 MG, ONE TIME DOSE
     Route: 030
     Dates: start: 20220906, end: 20220906
  18. COSYNTROPIN [Concomitant]
     Active Substance: COSYNTROPIN
     Indication: ACTH stimulation test
     Dosage: 250 MG, ONE TIME DOSE
     Route: 042
     Dates: start: 20220906, end: 20220906
  19. PENTAMIDINE [Concomitant]
     Active Substance: PENTAMIDINE
     Indication: Antifungal prophylaxis
     Dosage: 300 MG, ONE TIME DOSE
     Route: 055
     Dates: start: 20220719, end: 20220719
  20. MESNA [Concomitant]
     Active Substance: MESNA
     Indication: Prophylaxis
     Dosage: 1595 MG, Q12 HOURS
     Route: 042
     Dates: start: 20220801, end: 20220802

REACTIONS (42)
  - Thrombocytopenia [Unknown]
  - Febrile neutropenia [Recovered/Resolved]
  - Hyperkalaemia [Recovered/Resolved]
  - Neuropathy peripheral [Recovered/Resolved]
  - Cystitis haemorrhagic [Unknown]
  - Malnutrition [Recovered/Resolved]
  - Neutropenia [Unknown]
  - Hypoxia [Recovered/Resolved]
  - Anaemia [Recovering/Resolving]
  - Pain [Recovered/Resolved]
  - Pneumonia [Recovered/Resolved]
  - Hypercholesterolaemia [Unknown]
  - Blood cholesterol increased [Recovered/Resolved]
  - Blood creatine phosphokinase increased [Recovered/Resolved]
  - Blood creatinine increased [Recovered/Resolved]
  - Constipation [Recovered/Resolved]
  - Cystitis [Recovered/Resolved]
  - Diarrhoea [Recovered/Resolved]
  - Dizziness [Recovered/Resolved]
  - Localised oedema [Recovered/Resolved]
  - Hypocalcaemia [Recovered/Resolved]
  - Hypermagnesaemia [Recovered/Resolved]
  - Hypernatraemia [Recovered/Resolved]
  - Hyponatraemia [Recovered/Resolved]
  - Hyperphosphataemia [Recovered/Resolved]
  - Hypertension [Recovered/Resolved]
  - Insomnia [Recovering/Resolving]
  - Blood lactate dehydrogenase increased [Recovered/Resolved]
  - Stomatitis [Recovered/Resolved]
  - Nausea [Recovered/Resolved]
  - Nausea [Recovered/Resolved]
  - Neutrophil count decreased [Recovered/Resolved]
  - Platelet count decreased [Recovering/Resolving]
  - Rhinorrhoea [Recovered/Resolved]
  - Seborrhoeic dermatitis [Recovered/Resolved]
  - Tremor [Recovered/Resolved]
  - Blood triglycerides increased [Recovering/Resolving]
  - Upper respiratory tract infection [Recovered/Resolved]
  - Leukopenia [Recovered/Resolved]
  - Oedema peripheral [Unknown]
  - COVID-19 [Unknown]
  - Adenovirus infection [Unknown]

NARRATIVE: CASE EVENT DATE: 20220513
